FAERS Safety Report 6963739-X (Version None)
Quarter: 2010Q3

REPORT INFORMATION
  Report Type: 
  Country: None (occurrence: None)
  Receive Date: 20100902
  Receipt Date: 20100824
  Transmission Date: 20110219
  Serious: Yes (Hospitalization, Other)
  Sender: FDA-Public Use
  Company Number: US-AMGEN-QUU430142

PATIENT
  Sex: Female

DRUGS (1)
  1. NPLATE [Suspect]
     Indication: IDIOPATHIC THROMBOCYTOPENIC PURPURA
     Dates: start: 20081124, end: 20081215

REACTIONS (3)
  - PORTAL VEIN THROMBOSIS [None]
  - POSTOPERATIVE ABSCESS [None]
  - THERAPEUTIC RESPONSE DECREASED [None]
